FAERS Safety Report 24462823 (Version 2)
Quarter: 2025Q2

REPORT INFORMATION
  Report Type: Spontaneous
  Country: US (occurrence: US)
  Receive Date: 20241018
  Receipt Date: 20250414
  Transmission Date: 20250716
  Serious: No
  Sender: GLAXOSMITHKLINE
  Company Number: US-GSKCCFUS-Case-02123442_AE-117144

PATIENT
  Age: 71 Year
  Sex: Female

DRUGS (3)
  1. ZEJULA [Suspect]
     Active Substance: NIRAPARIB
     Indication: Product used for unknown indication
     Dosage: 200 MG, QD
     Dates: start: 20241001
  2. ZEJULA [Suspect]
     Active Substance: NIRAPARIB
  3. ZEJULA [Suspect]
     Active Substance: NIRAPARIB
     Indication: Product used for unknown indication

REACTIONS (5)
  - Depression [Unknown]
  - Headache [Unknown]
  - Insomnia [Unknown]
  - Nausea [Unknown]
  - Red blood cell count decreased [Unknown]

NARRATIVE: CASE EVENT DATE: 20241203
